FAERS Safety Report 6330328-X (Version None)
Quarter: 2009Q3

REPORT INFORMATION
  Report Type: 
  Country: None (occurrence: None)
  Receive Date: 20090826
  Receipt Date: 20090826
  Transmission Date: 20100115
  Serious: Yes (Other)
  Sender: FDA-Public Use
  Company Number: None

PATIENT
  Age: 53 Year
  Sex: Male
  Weight: 91.6266 kg

DRUGS (1)
  1. VENLAFAXINE HCL EXTENDED-RELEASE [Suspect]
     Indication: ANXIETY DISORDER
     Dosage: FIVE = 225MG TABS QAM PO
     Route: 048
     Dates: start: 20090401, end: 20090818

REACTIONS (1)
  - DRUG INEFFECTIVE [None]
